FAERS Safety Report 10100535 (Version 1)
Quarter: 2014Q2

REPORT INFORMATION
  Report Type: Spontaneous
  Country: US (occurrence: US)
  Receive Date: 20140423
  Receipt Date: 20140423
  Transmission Date: 20141212
  Serious: Yes (Other)
  Sender: FDA-Public Use
  Company Number: US-GLAXOSMITHKLINE-A1070376A

PATIENT
  Sex: Male

DRUGS (2)
  1. VOTRIENT [Suspect]
     Indication: RENAL CANCER
     Route: 065
     Dates: start: 20121220, end: 20130123
  2. PLAVIX [Concomitant]
     Route: 065

REACTIONS (4)
  - Spinal laminectomy [Unknown]
  - Spinal fusion surgery [Unknown]
  - Impaired healing [Unknown]
  - Skin graft [Unknown]
